FAERS Safety Report 5700115-1 (Version None)
Quarter: 2008Q2

REPORT INFORMATION
  Report Type: 
  Country: None (occurrence: None)
  Receive Date: 20080410
  Receipt Date: 20080402
  Transmission Date: 20081010
  Serious: Yes (Hospitalization, Other)
  Sender: FDA-Public Use
  Company Number: PHBS2007NL21298

PATIENT
  Sex: Male

DRUGS (2)
  1. MYFORTIC [Suspect]
     Indication: PEMPHIGUS
     Dosage: 360 MG, QID
     Route: 048
     Dates: start: 20061009
  2. PREDNISOLONE [Concomitant]
     Indication: PEMPHIGUS
     Dosage: 20 MG/DAY
     Route: 048
     Dates: start: 20071031

REACTIONS (3)
  - ARRHYTHMIA [None]
  - HEART RATE INCREASED [None]
  - TACHYCARDIA [None]
